FAERS Safety Report 9798237 (Version 3)
Quarter: 2014Q1

REPORT INFORMATION
  Report Type: Spontaneous
  Country: US (occurrence: None)
  Receive Date: 20140102
  Receipt Date: 20140221
  Transmission Date: 20141002
  Serious: Yes (Hospitalization, Other)
  Sender: FDA-Public Use
  Company Number: US-000840

PATIENT
  Sex: Female

DRUGS (16)
  1. GATTEX [Suspect]
     Indication: SHORT-BOWEL SYNDROME
     Dosage: (0.295 ML 2X/WEEK, STREN/VOLUM: 0.295 ML|FREQU: 2 X 1 WEEK)
     Route: 058
     Dates: start: 20130928, end: 20140121
  2. HUMIRA [Concomitant]
  3. IMURAN /00001501/ [Concomitant]
  4. AMITRIPTYLINE [Concomitant]
  5. PAXIL /00500401/ [Concomitant]
  6. NEXIUM [Concomitant]
  7. FOSAMAX [Concomitant]
  8. B 12 [Concomitant]
  9. DILAUDID [Concomitant]
  10. PHENERGAN /00033001/ [Concomitant]
  11. ROBAXIN [Concomitant]
  12. CREON [Concomitant]
  13. FOLIC ACID [Concomitant]
  14. SOLUTIONS FOR PARENTERAL NUTRITION [Concomitant]
  15. CALCIUM + VIT D [Concomitant]
  16. ZOFRAN/00955301/ [Concomitant]

REACTIONS (11)
  - Melanocytic naevus [None]
  - Abdominal pain [None]
  - Crohn^s disease [None]
  - Swelling [None]
  - Condition aggravated [None]
  - Hypokalaemia [None]
  - Hypermagnesuria [None]
  - Local swelling [None]
  - Swelling face [None]
  - Eye swelling [None]
  - Weight decreased [None]
